FAERS Safety Report 6863356-6 (Version None)
Quarter: 2010Q3

REPORT INFORMATION
  Report Type: 
  Country: None (occurrence: None)
  Receive Date: 20100707
  Receipt Date: 20100622
  Transmission Date: 20110219
  Serious: No
  Sender: FDA-Public Use
  Company Number: TR-145004

PATIENT

DRUGS (3)
  1. WINRHO [Suspect]
     Indication: IDIOPATHIC THROMBOCYTOPENIC PURPURA
     Dosage: (75 UG/KG INTRAVENOUS BOLUS)
     Route: 040
  2. PREDNISONE [Concomitant]
  3. OTHER ANAGESICS AND ANTIPYRETICS [Concomitant]

REACTIONS (2)
  - HAEMOGLOBINURIA [None]
  - HAEMOLYSIS [None]
